FAERS Safety Report 6426586-3 (Version None)
Quarter: 2009Q4

REPORT INFORMATION
  Report Type: 
  Country: None (occurrence: None)
  Receive Date: 20091016
  Receipt Date: 20090511
  Transmission Date: 20100525
  Serious: Yes (Other)
  Sender: FDA-Public Use
  Company Number: 60165

PATIENT
  Sex: Female

DRUGS (3)
  1. LEUCOVORIN CALCIUM [Suspect]
     Indication: COLON CANCER METASTATIC
  2. FLUOROURACIL [Concomitant]
  3. OXALIPLATIN [Concomitant]

REACTIONS (1)
  - PYREXIA [None]
